FAERS Safety Report 17098095 (Version 1)
Quarter: 2019Q4

REPORT INFORMATION
  Report Type: Spontaneous
  Country: NO (occurrence: NO)
  Receive Date: 20191202
  Receipt Date: 20191202
  Transmission Date: 20200122
  Serious: Yes (Other)
  Sender: FDA-Public Use
  Company Number: NO-PFIZER INC-2019512933

PATIENT
  Age: 17 Year
  Sex: Female

DRUGS (2)
  1. ZOLOFT [Suspect]
     Active Substance: SERTRALINE HYDROCHLORIDE
     Dosage: 50 MG, DAILY (STARTING DOSE 25 MG DAILY, AFTER ONE WEEK 50 MG DAILY)
     Route: 048
     Dates: start: 20190803, end: 20190822
  2. ZOLOFT [Suspect]
     Active Substance: SERTRALINE HYDROCHLORIDE
     Indication: ANXIETY
     Dosage: 25 MG, DAILY (STARTING DOSE 25 MG DAILY,AFTER ONE WEEK 50 MG DAILY )
     Route: 048
     Dates: start: 20190727, end: 20190802

REACTIONS (3)
  - Product use issue [Unknown]
  - Off label use [Unknown]
  - Tardive dyskinesia [Recovered/Resolved]

NARRATIVE: CASE EVENT DATE: 20190727
